FAERS Safety Report 6043698-7 (Version None)
Quarter: 2009Q1

REPORT INFORMATION
  Report Type: 
  Country: None (occurrence: None)
  Receive Date: 20090120
  Receipt Date: 20090107
  Transmission Date: 20090719
  Serious: Yes (Disabling, Other)
  Sender: FDA-Public Use
  Company Number: PHEH2004US03639

PATIENT
  Sex: Female

DRUGS (8)
  1. AREDIA [Suspect]
     Indication: MULTIPLE MYELOMA
     Dosage: 90 MG, QMO
     Route: 042
     Dates: start: 20010201, end: 20020701
  2. VINCRISTINE [Concomitant]
  3. ADRIAMYCIN PFS [Concomitant]
  4. DAUNORUBICIN HCL [Concomitant]
  5. OXYCONTIN [Concomitant]
  6. PAXIL [Concomitant]
  7. ATIVAN [Concomitant]
  8. ZANTAC [Concomitant]

REACTIONS (5)
  - ABSCESS DRAINAGE [None]
  - BONE DISORDER [None]
  - INFECTION [None]
  - OSTEONECROSIS [None]
  - PAIN [None]
